FAERS Safety Report 24817458 (Version 1)
Quarter: 2025Q1

REPORT INFORMATION
  Report Type: Other
  Country: RO (occurrence: RO)
  Receive Date: 20250108
  Receipt Date: 20250108
  Transmission Date: 20250409
  Serious: Yes (Death, Other)
  Sender: STRIDES
  Company Number: RO-ASTRAZENECA-202412GLO016086RO

PATIENT
  Sex: Male

DRUGS (24)
  1. METOCLOPRAMIDE [Suspect]
     Active Substance: METOCLOPRAMIDE
     Indication: Biliary colic
     Route: 065
     Dates: start: 201708
  2. METOCLOPRAMIDE [Suspect]
     Active Substance: METOCLOPRAMIDE
     Route: 065
     Dates: start: 201708
  3. METOCLOPRAMIDE [Suspect]
     Active Substance: METOCLOPRAMIDE
     Route: 065
     Dates: start: 201708
  4. METOCLOPRAMIDE [Suspect]
     Active Substance: METOCLOPRAMIDE
     Route: 065
     Dates: start: 201708
  5. IBUPROFEN [Suspect]
     Active Substance: IBUPROFEN
     Indication: Biliary colic
     Route: 065
     Dates: start: 201708
  6. IBUPROFEN [Suspect]
     Active Substance: IBUPROFEN
     Route: 065
     Dates: start: 201708
  7. IBUPROFEN [Suspect]
     Active Substance: IBUPROFEN
     Route: 065
     Dates: start: 201708
  8. IBUPROFEN [Suspect]
     Active Substance: IBUPROFEN
     Route: 065
     Dates: start: 201708
  9. NEXIUM [Suspect]
     Active Substance: ESOMEPRAZOLE MAGNESIUM
     Indication: Biliary colic
     Route: 065
     Dates: start: 201708
  10. NEXIUM [Suspect]
     Active Substance: ESOMEPRAZOLE MAGNESIUM
     Route: 065
     Dates: start: 201708
  11. NEXIUM [Suspect]
     Active Substance: ESOMEPRAZOLE MAGNESIUM
     Route: 065
     Dates: start: 201708
  12. NEXIUM [Suspect]
     Active Substance: ESOMEPRAZOLE MAGNESIUM
     Route: 065
     Dates: start: 201708
  13. DROTAVERINE HYDROCHLORIDE [Suspect]
     Active Substance: DROTAVERINE HYDROCHLORIDE
     Indication: Biliary colic
     Route: 065
     Dates: start: 201708
  14. DROTAVERINE HYDROCHLORIDE [Suspect]
     Active Substance: DROTAVERINE HYDROCHLORIDE
     Route: 065
     Dates: start: 201708
  15. PANTOPRAZOLE [Suspect]
     Active Substance: PANTOPRAZOLE
     Indication: Biliary colic
     Route: 065
     Dates: start: 201708
  16. PANTOPRAZOLE [Suspect]
     Active Substance: PANTOPRAZOLE
     Route: 065
     Dates: start: 201708
  17. PANTOPRAZOLE [Suspect]
     Active Substance: PANTOPRAZOLE
     Route: 065
     Dates: start: 201708
  18. PANTOPRAZOLE [Suspect]
     Active Substance: PANTOPRAZOLE
     Route: 065
     Dates: start: 201708
  19. ASPIRIN [Suspect]
     Active Substance: ASPIRIN
     Indication: Biliary colic
     Route: 065
     Dates: start: 201708
  20. ASPIRIN [Suspect]
     Active Substance: ASPIRIN
     Route: 065
     Dates: start: 201708
  21. ASPIRIN [Suspect]
     Active Substance: ASPIRIN
     Route: 065
     Dates: start: 201708
  22. ASPIRIN [Suspect]
     Active Substance: ASPIRIN
     Route: 065
     Dates: start: 201708
  23. PANCREATIN [Suspect]
     Active Substance: PANCRELIPASE
     Indication: Biliary colic
     Route: 065
     Dates: start: 201708
  24. PANCREATIN [Suspect]
     Active Substance: PANCRELIPASE
     Route: 065
     Dates: start: 201708

REACTIONS (3)
  - Septic shock [Fatal]
  - Duodenal ulcer perforation [Fatal]
  - Peritonitis [Fatal]

NARRATIVE: CASE EVENT DATE: 20170801
